FAERS Safety Report 4677174-0 (Version None)
Quarter: 2005Q2

REPORT INFORMATION
  Report Type: 
  Country: None (occurrence: None)
  Receive Date: 20050526
  Receipt Date: 20050512
  Transmission Date: 20051028
  Serious: Yes (Other)
  Sender: FDA-Public Use
  Company Number: FABR-11106

PATIENT
  Age: 62 Year
  Sex: Female
  Weight: 75 kg

DRUGS (3)
  1. FABRAZYME [Suspect]
     Indication: FABRY'S DISEASE
     Dates: start: 20031107
  2. BETA BLOCKING AGENTS [Concomitant]
  3. MARCUMAR [Concomitant]

REACTIONS (1)
  - TACHYARRHYTHMIA [None]
